FAERS Safety Report 22400345 (Version 3)
Quarter: 2024Q3

REPORT INFORMATION
  Report Type: Report from Study
  Country: DE (occurrence: DE)
  Receive Date: 20230602
  Receipt Date: 20240701
  Transmission Date: 20241017
  Serious: No
  Sender: PUMA
  Company Number: DE-PFM-2023-02446

PATIENT

DRUGS (7)
  1. NERATINIB [Suspect]
     Active Substance: NERATINIB
     Indication: Breast cancer
     Dosage: 120 MG/DAY
     Route: 048
     Dates: start: 20230417, end: 20230423
  2. NERATINIB [Suspect]
     Active Substance: NERATINIB
     Dosage: 160 MG/DAY
     Route: 048
     Dates: start: 20230424, end: 20230430
  3. NERATINIB [Suspect]
     Active Substance: NERATINIB
     Dosage: 240 MG/DAY
     Route: 048
     Dates: start: 20230501, end: 20230627
  4. RAMIPRIL [Concomitant]
     Active Substance: RAMIPRIL
     Indication: Hypertension
     Dosage: 5 MG, DAILY
     Route: 048
  5. VITAMIN D [Concomitant]
     Active Substance: VITAMIN D NOS
     Indication: Prophylaxis
     Dosage: 20000 IU, WEEKLY
     Route: 048
  6. LOPERAMIDE [Concomitant]
     Active Substance: LOPERAMIDE
     Indication: Prophylaxis against diarrhoea
     Dosage: UNKNOWN DOSE (PRN)
     Route: 048
     Dates: start: 20230417, end: 20230427
  7. LETROZOLE [Concomitant]
     Active Substance: LETROZOLE
     Indication: Breast cancer
     Dosage: UNK
     Route: 065
     Dates: start: 202206

REACTIONS (7)
  - Thrombocytopenia [Recovered/Resolved]
  - Leukopenia [Recovered/Resolved]
  - Constipation [Recovered/Resolved]
  - Abdominal pain [Recovered/Resolved]
  - Nausea [Recovered/Resolved]
  - Prescribed underdose [Unknown]
  - Off label use [Unknown]

NARRATIVE: CASE EVENT DATE: 20230417
